FAERS Safety Report 9034861 (Version 2)
Quarter: 2013Q1

REPORT INFORMATION
  Report Type: Spontaneous
  Country: GB (occurrence: None)
  Receive Date: 20130115
  Receipt Date: 20130125
  Transmission Date: 20140127
  Serious: Yes (Hospitalization)
  Sender: FDA-Public Use
  Company Number: 1552636

PATIENT
  Age: 8 Year
  Sex: Male
  Weight: 24.05 kg

DRUGS (7)
  1. (VINCRISTINE  SULFATE) [Suspect]
     Indication: RHABDOMYOSARCOMA
     Dosage: 1.4  MG MILLIGRAM (S),  1 DAY,  ?INTRAVENOUS  (NOT OTHERWISE SPECIFIED)?12/07/2012  -  UNKNOWN  ( UNKNOWN )?
     Route: 042
  2. DOXORUBICIN  HYDROCHLORIDE [Suspect]
     Indication: RHABDOMYOSARCOMA
     Route: 042
  3. DACTINOMYCIN [Suspect]
     Indication: RHABDOMYOSARCOMA
     Route: 042
  4. IFOSFAMIDE [Suspect]
     Indication: RHABDOMYOSARCOMA
     Route: 042
  5. (CO-TRIMOXAZOLE) [Concomitant]
  6. AMLODIPINE [Concomitant]
  7. DOMPERIDONE [Concomitant]

REACTIONS (1)
  - Febrile neutropenia [None]
